FAERS Safety Report 9253690 (Version 3)
Quarter: 2013Q2

REPORT INFORMATION
  Report Type: Spontaneous
  Country: US (occurrence: US)
  Receive Date: 20130425
  Receipt Date: 20130628
  Transmission Date: 20140414
  Serious: No
  Sender: FDA-Public Use
  Company Number: US-009507513-1304USA009733

PATIENT
  Sex: Male

DRUGS (2)
  1. PEG-INTRON [Suspect]
     Indication: HEPATITIS C
     Dosage: 150 MICROGRAM, QW, REDIPEN
     Route: 058
     Dates: start: 20130214
  2. RIBASPHERE [Suspect]
     Dosage: 600 MG, BID

REACTIONS (20)
  - Arthralgia [Unknown]
  - Visual impairment [Unknown]
  - Weight decreased [Unknown]
  - Dysgeusia [Unknown]
  - Dry mouth [Unknown]
  - Chromaturia [Unknown]
  - Increased tendency to bruise [Unknown]
  - Pallor [Unknown]
  - Vomiting [Unknown]
  - Dyspnoea [Unknown]
  - Pyrexia [Unknown]
  - Fatigue [Unknown]
  - Headache [Unknown]
  - Blood pressure increased [Unknown]
  - Influenza like illness [Unknown]
  - Nausea [Unknown]
  - Injection site swelling [Unknown]
  - Arthralgia [Unknown]
  - Dysgeusia [Unknown]
  - Acne [Unknown]
